FAERS Safety Report 16236687 (Version 5)
Quarter: 2019Q3

REPORT INFORMATION
  Report Type: Spontaneous
  Country: JP (occurrence: JP)
  Receive Date: 20190425
  Receipt Date: 20190702
  Transmission Date: 20191004
  Serious: Yes (Hospitalization)
  Sender: FDA-Public Use
  Company Number: JP-ASTELLAS-2019JP007355

PATIENT
  Age: 79 Year
  Sex: Male

DRUGS (16)
  1. CALONAL [Concomitant]
     Active Substance: ACETAMINOPHEN
     Indication: SKIN ULCER
     Dosage: 0-2000, 0-4 TIMES ONE DAY
     Route: 048
  2. EQUA [Concomitant]
     Active Substance: VILDAGLIPTIN
     Indication: TYPE 2 DIABETES MELLITUS
     Dosage: 100 MG/DAY, TWICE DAILY
     Route: 048
  3. TAMSULOSIN                         /01280302/ [Concomitant]
     Active Substance: TAMSULOSIN HYDROCHLORIDE
     Indication: PROSTATE CANCER
     Dosage: 0.2 MG, ONCE DAILY
     Route: 048
  4. GONAX [Concomitant]
     Active Substance: DEGARELIX
     Indication: PROSTATE CANCER
     Route: 058
  5. GEBEN [Concomitant]
     Active Substance: SILVER SULFADIAZINE
     Indication: SKIN ULCER
     Dosage: UNK UNK, TWICE DAILY, APPLICATION
     Route: 003
     Dates: start: 20190326
  6. LIPLE [Concomitant]
     Active Substance: ALPROSTADIL
     Indication: PERIPHERAL ARTERIAL OCCLUSIVE DISEASE
     Route: 042
     Dates: start: 20190423, end: 20190426
  7. SPIRONOLACTONE. [Concomitant]
     Active Substance: SPIRONOLACTONE
     Indication: HYPERTENSION
     Route: 048
  8. CILOSTAZOL. [Concomitant]
     Active Substance: CILOSTAZOL
     Indication: PERIPHERAL ARTERIAL OCCLUSIVE DISEASE
     Dosage: 20 MG/DAY, TWICE DAILY
     Route: 048
  9. XTANDI [Suspect]
     Active Substance: ENZALUTAMIDE
     Route: 048
     Dates: start: 20161219
  10. PERINDOPRIL                        /00790702/ [Concomitant]
     Active Substance: PERINDOPRIL ERBUMINE
     Indication: HYPERTENSION
     Route: 048
  11. SUVOREXANT. [Concomitant]
     Active Substance: SUVOREXANT
     Indication: INSOMNIA
     Route: 048
  12. XTANDI [Suspect]
     Active Substance: ENZALUTAMIDE
     Indication: PROSTATE CANCER
     Route: 048
  13. BAYASPIRIN [Concomitant]
     Active Substance: ASPIRIN
     Indication: PERIPHERAL ARTERIAL OCCLUSIVE DISEASE
     Route: 048
  14. XYLOCAINE [Concomitant]
     Active Substance: LIDOCAINE HYDROCHLORIDE
     Indication: SKIN ULCER
     Dosage: UNK UNK, TWICE DAILY, APPLICATION
     Route: 003
     Dates: start: 20190406
  15. AMARYL [Concomitant]
     Active Substance: GLIMEPIRIDE
     Indication: TYPE 2 DIABETES MELLITUS
     Route: 048
  16. EMPAGLIFLOZIN [Concomitant]
     Active Substance: EMPAGLIFLOZIN
     Indication: TYPE 2 DIABETES MELLITUS
     Route: 048

REACTIONS (2)
  - Impaired healing [Not Recovered/Not Resolved]
  - Prescribed underdose [Unknown]

NARRATIVE: CASE EVENT DATE: 20190326
